FAERS Safety Report 15214080 (Version 2)
Quarter: 2018Q4

REPORT INFORMATION
  Report Type: Spontaneous
  Country: US (occurrence: US)
  Receive Date: 20180730
  Receipt Date: 20181017
  Transmission Date: 20190204
  Serious: No
  Sender: FDA-Public Use
  Company Number: US-PFIZER INC-2018305179

PATIENT
  Age: 44 Year
  Sex: Female
  Weight: 64 kg

DRUGS (2)
  1. LYRICA [Suspect]
     Active Substance: PREGABALIN
     Dosage: 75 MG, 1X/DAY
     Dates: start: 201804
  2. LYRICA [Suspect]
     Active Substance: PREGABALIN
     Indication: FIBROMYALGIA
     Dosage: 75 MG, 2X/DAY
     Route: 048
     Dates: start: 2012, end: 2018

REACTIONS (5)
  - Plantar fasciitis [Not Recovered/Not Resolved]
  - Intentional product misuse [Unknown]
  - Ligament sprain [Not Recovered/Not Resolved]
  - Exostosis [Unknown]
  - Insomnia [Unknown]

NARRATIVE: CASE EVENT DATE: 20180717
